FAERS Safety Report 9410526 (Version 5)
Quarter: 2014Q2

REPORT INFORMATION
  Report Type: Spontaneous
  Country: US (occurrence: US)
  Receive Date: 20130719
  Receipt Date: 20140519
  Transmission Date: 20141212
  Serious: Yes (Other)
  Sender: FDA-Public Use
  Company Number: US-009507513-1307USA008142

PATIENT
  Sex: Male
  Weight: 95.24 kg

DRUGS (8)
  1. PROPECIA [Suspect]
     Indication: ANDROGENETIC ALOPECIA
     Dosage: 1 MG, QD
     Route: 048
     Dates: start: 20000822, end: 20030129
  2. PROPECIA [Suspect]
     Indication: ALOPECIA
  3. PENTASA [Concomitant]
     Indication: CROHN^S DISEASE
     Dosage: UNK
     Dates: start: 1995, end: 201303
  4. FLAGYL [Concomitant]
     Indication: CROHN^S DISEASE
     Dosage: UNK
     Dates: start: 1995, end: 201303
  5. PREDNISONE [Concomitant]
     Indication: CROHN^S DISEASE
     Dosage: UNK
     Dates: start: 1995, end: 201303
  6. BICILLIN [Concomitant]
     Indication: BACTERIAL INFECTION
     Dosage: UNK
     Dates: start: 1995, end: 201303
  7. EFFEXOR [Concomitant]
     Indication: DEPRESSION
     Dosage: UNK
     Dates: start: 1990
  8. BUSPIRONE HYDROCHLORIDE [Concomitant]
     Indication: DEPRESSION
     Dosage: UNK
     Dates: start: 1990

REACTIONS (21)
  - Colectomy [Unknown]
  - Anxiety [Unknown]
  - Cognitive disorder [Not Recovered/Not Resolved]
  - Erectile dysfunction [Not Recovered/Not Resolved]
  - Sexual dysfunction [Not Recovered/Not Resolved]
  - Depression [Not Recovered/Not Resolved]
  - Appendicectomy [Unknown]
  - Libido disorder [Unknown]
  - Vasectomy [Unknown]
  - Spinal laminectomy [Unknown]
  - Abdominal pain [Unknown]
  - Myalgia [Unknown]
  - Sleep apnoea syndrome [Unknown]
  - Gastrooesophageal reflux disease [Unknown]
  - Insomnia [Unknown]
  - Rhinitis [Unknown]
  - Psoriasis [Unknown]
  - Anaemia [Unknown]
  - Vitamin B12 deficiency [Unknown]
  - Testicular failure [Unknown]
  - Rosacea [Unknown]
